FAERS Safety Report 8593710-6 (Version None)
Quarter: 2012Q3

REPORT INFORMATION
  Report Type: 
  Country: None (occurrence: None)
  Receive Date: 20120814
  Receipt Date: 20120629
  Transmission Date: 20120928
  Serious: No
  Sender: FDA-Public Use
  Company Number: US-ASTRAZENECA-2012SE44578

PATIENT
  Age: 62 Year
  Sex: Female
  Weight: 104.3 kg

DRUGS (11)
  1. DILTIAZEM [Concomitant]
  2. CAPRIL [Concomitant]
  3. ESTRACE [Concomitant]
  4. SEROQUEL [Suspect]
     Indication: SLEEP DISORDER
     Route: 048
     Dates: start: 20120101
  5. HYDROLOZINE [Concomitant]
  6. CYMBALTA [Concomitant]
  7. LUFYLLIN-GG [Concomitant]
  8. LASIX [Concomitant]
  9. LORTAB [Concomitant]
  10. VITAMIN [Concomitant]
  11. OXYCONTIN [Concomitant]

REACTIONS (3)
  - HEAD INJURY [None]
  - OFF LABEL USE [None]
  - FALL [None]
